FAERS Safety Report 22962485 (Version 2)
Quarter: 2023Q4

REPORT INFORMATION
  Report Type: Report from Study
  Country: CO (occurrence: CO)
  Receive Date: 20230920
  Receipt Date: 20231003
  Transmission Date: 20240109
  Serious: Yes (Life-Threatening, Hospitalization, Other)
  Sender: FDA-Public Use
  Company Number: CO-ABBVIE-5413791

PATIENT
  Age: 72 Year
  Sex: Male
  Weight: 61 kg

DRUGS (1)
  1. ZEMPLAR [Suspect]
     Active Substance: PARICALCITOL
     Indication: Chronic kidney disease
     Dosage: FORM STRENGTH: 5 MICROGRAM
     Route: 042
     Dates: start: 20181114, end: 20230708

REACTIONS (5)
  - Pericardial effusion [Not Recovered/Not Resolved]
  - Chronic obstructive pulmonary disease [Not Recovered/Not Resolved]
  - Mobility decreased [Recovering/Resolving]
  - Pulmonary oedema [Not Recovered/Not Resolved]
  - Generalised oedema [Recovering/Resolving]

NARRATIVE: CASE EVENT DATE: 20230801
